FAERS Safety Report 15890432 (Version 1)
Quarter: 2019Q1

REPORT INFORMATION
  Report Type: Spontaneous
  Country: US (occurrence: US)
  Receive Date: 20190130
  Receipt Date: 20190130
  Transmission Date: 20190417
  Serious: Yes (Hospitalization)
  Sender: FDA-Public Use
  Company Number: None

PATIENT
  Age: 49 Year
  Sex: Female

DRUGS (1)
  1. NIVOLUMAB [Suspect]
     Active Substance: NIVOLUMAB
     Indication: CHOLANGIOCARCINOMA
     Dosage: ?          OTHER FREQUENCY:Q4 WEEKS;?
     Route: 041
     Dates: start: 20180712, end: 20190103

REACTIONS (2)
  - Transaminases increased [None]
  - Hyperbilirubinaemia [None]

NARRATIVE: CASE EVENT DATE: 20190129
